FAERS Safety Report 14548043 (Version 1)
Quarter: 2018Q1

REPORT INFORMATION
  Report Type: Report from Study
  Country: US (occurrence: US)
  Receive Date: 20180219
  Receipt Date: 20180219
  Transmission Date: 20180509
  Serious: Yes (Hospitalization)
  Sender: FDA-Public Use
  Company Number: US-BAYER-2018-028442

PATIENT
  Sex: Female
  Weight: 68.03 kg

DRUGS (2)
  1. ADEMPAS [Suspect]
     Active Substance: RIOCIGUAT
     Indication: PULMONARY ARTERIAL HYPERTENSION
     Dosage: 0.5 MG, TID
     Route: 048
     Dates: start: 20171228
  2. XARELTO [Concomitant]
     Active Substance: RIVAROXABAN
     Dosage: UNK

REACTIONS (3)
  - Feeling abnormal [Unknown]
  - Pain [Unknown]
  - Abdominal discomfort [Unknown]
